FAERS Safety Report 14797606 (Version 5)
Quarter: 2023Q1

REPORT INFORMATION
  Report Type: Spontaneous
  Country: US (occurrence: None)
  Receive Date: 20180424
  Receipt Date: 20230227
  Transmission Date: 20230418
  Serious: Yes (Other)
  Sender: FDA-Public Use
  Company Number: 2018SE48837

PATIENT
  Age: 65 Year
  Sex: Male
  Weight: 77.1 kg

DRUGS (34)
  1. NEXIUM [Suspect]
     Active Substance: ESOMEPRAZOLE MAGNESIUM
     Route: 048
  2. NEXIUM 24HR [Suspect]
     Active Substance: ESOMEPRAZOLE MAGNESIUM
     Route: 048
  3. PRILOSEC [Suspect]
     Active Substance: OMEPRAZOLE MAGNESIUM
     Route: 048
  4. PRILOSEC [Suspect]
     Active Substance: OMEPRAZOLE MAGNESIUM
     Dosage: GENERIC
     Route: 065
  5. PRILOSEC [Suspect]
     Active Substance: OMEPRAZOLE MAGNESIUM
     Route: 048
     Dates: start: 20150731
  6. PRILOSEC [Suspect]
     Active Substance: OMEPRAZOLE MAGNESIUM
     Route: 048
     Dates: start: 20150731
  7. PRILOSEC [Suspect]
     Active Substance: OMEPRAZOLE MAGNESIUM
     Route: 048
     Dates: start: 20160927
  8. PRILOSEC [Suspect]
     Active Substance: OMEPRAZOLE MAGNESIUM
     Route: 048
     Dates: start: 20160927
  9. PRILOSEC OTC [Suspect]
     Active Substance: OMEPRAZOLE MAGNESIUM
     Route: 048
  10. DEXILANT [Suspect]
     Active Substance: DEXLANSOPRAZOLE
  11. PREVACID [Suspect]
     Active Substance: LANSOPRAZOLE
  12. PREVACID 24 HR [Suspect]
     Active Substance: LANSOPRAZOLE
  13. PROTONIX [Suspect]
     Active Substance: PANTOPRAZOLE SODIUM
  14. ZANTAC [Suspect]
     Active Substance: RANITIDINE HYDROCHLORIDE
     Indication: Dyspepsia
     Dates: start: 20170818
  15. ZANTAC [Suspect]
     Active Substance: RANITIDINE HYDROCHLORIDE
     Indication: Dyspepsia
     Dates: start: 20170602
  16. OXYCODONE [Concomitant]
     Active Substance: OXYCODONE
     Indication: Pain
     Dosage: 5.0MG EVERY 4 - 6 HOURS
     Dates: start: 20181204
  17. OXYCODONE [Concomitant]
     Active Substance: OXYCODONE
     Indication: Pain
     Dosage: 5.0MG EVERY 4 - 6 HOURS
     Dates: start: 20190401
  18. TAMSULOSIN [Concomitant]
     Active Substance: TAMSULOSIN
  19. CALCIUM [Concomitant]
     Active Substance: CALCIUM
     Indication: Osteoporosis
  20. RANITIDINE [Concomitant]
     Active Substance: RANITIDINE
     Indication: Gastrooesophageal reflux disease
  21. AMLODIPINE [Concomitant]
     Active Substance: AMLODIPINE BESYLATE
     Indication: Hypertension
  22. AMLODIPINE [Concomitant]
     Active Substance: AMLODIPINE BESYLATE
     Indication: Hypertension
     Dates: start: 20181224
  23. LISINOPRIL [Concomitant]
     Active Substance: LISINOPRIL
     Indication: Hypertension
     Dates: start: 20130415
  24. LISINOPRIL [Concomitant]
     Active Substance: LISINOPRIL
     Indication: Hypertension
     Dates: start: 20160328
  25. PRAVASTATIN [Concomitant]
     Active Substance: PRAVASTATIN
     Indication: Blood cholesterol
     Dates: start: 20160624
  26. PRAVASTATIN [Concomitant]
     Active Substance: PRAVASTATIN
     Indication: Blood cholesterol
     Dates: start: 20180531
  27. IBUPROFEN [Concomitant]
     Active Substance: IBUPROFEN
     Indication: Pain
  28. ASPIRIN [Concomitant]
     Active Substance: ASPIRIN
     Indication: Pain
  29. AXID [Concomitant]
     Active Substance: NIZATIDINE
  30. PEPCID AC [Concomitant]
     Active Substance: FAMOTIDINE
  31. SENNA [Concomitant]
     Active Substance: SENNA LEAF\SENNOSIDES\SENNOSIDES A AND B
  32. FLOMAX [Concomitant]
     Active Substance: TAMSULOSIN HYDROCHLORIDE
  33. TRAMADOL HCL [Concomitant]
     Active Substance: TRAMADOL HYDROCHLORIDE
  34. ALENDRONATE [Concomitant]
     Active Substance: ALENDRONATE SODIUM
     Dates: start: 20181224

REACTIONS (5)
  - Chronic kidney disease [Unknown]
  - Renal failure [Unknown]
  - Renal injury [Unknown]
  - Nephropathy [Not Recovered/Not Resolved]
  - Rebound acid hypersecretion [Unknown]
